FAERS Safety Report 17420251 (Version 1)
Quarter: 2020Q1

REPORT INFORMATION
  Report Type: Spontaneous
  Country: US (occurrence: US)
  Receive Date: 20200214
  Receipt Date: 20200214
  Transmission Date: 20200409
  Serious: Yes (Hospitalization, Other)
  Sender: FDA-Public Use
  Company Number: US-ASTRAZENECA-2020SE21470

PATIENT
  Sex: Female
  Weight: 113.4 kg

DRUGS (9)
  1. BYDUREON [Suspect]
     Active Substance: EXENATIDE
     Indication: TYPE 2 DIABETES MELLITUS
     Dosage: ONCE A WEEK
     Route: 058
  2. MAGNESIUM [Concomitant]
     Active Substance: MAGNESIUM
     Indication: MUSCLE SPASMS
  3. OMEPRAZOLE. [Concomitant]
     Active Substance: OMEPRAZOLE
  4. PIOGLITAZONE. [Concomitant]
     Active Substance: PIOGLITAZONE
  5. LANTUS [Concomitant]
     Active Substance: INSULIN GLARGINE
  6. CALCIUM CITRATE [Concomitant]
     Active Substance: CALCIUM CITRATE
  7. FERROUS SULFATE. [Concomitant]
     Active Substance: FERROUS SULFATE
  8. BYDUREON BCISE [Suspect]
     Active Substance: EXENATIDE
     Indication: TYPE 2 DIABETES MELLITUS
     Route: 058
     Dates: start: 20200130
  9. VITAMIN D [Concomitant]
     Active Substance: VITAMIN D NOS

REACTIONS (15)
  - Blood iron decreased [Unknown]
  - Kidney infection [Recovered/Resolved with Sequelae]
  - Atrial fibrillation [Unknown]
  - Weight decreased [Unknown]
  - Faeces discoloured [Unknown]
  - Hepatic cirrhosis [Unknown]
  - Fall [Unknown]
  - Sjogren^s syndrome [Unknown]
  - Haemorrhoids [Unknown]
  - Nephrolithiasis [Recovered/Resolved with Sequelae]
  - Cholelithiasis [Unknown]
  - Abdominal discomfort [Unknown]
  - Product dose omission [Unknown]
  - Upper limb fracture [Unknown]
  - Abdominal pain upper [Unknown]
